FAERS Safety Report 8923403 (Version 1)
Quarter: 2012Q4

REPORT INFORMATION
  Report Type: 
  Country: JP (occurrence: JP)
  Receive Date: 20121124
  Receipt Date: 20121124
  Transmission Date: 20130627
  Serious: Yes (Hospitalization)
  Sender: FDA-Public Use
  Company Number: JP-009507513-1211JPN008389

PATIENT
  Age: 64 Year
  Sex: Female
  Weight: 65 kg

DRUGS (8)
  1. PEGINTRON [Suspect]
     Indication: CHRONIC HEPATITIS C
     Dosage: 1.5 Microgram per kilogram, qw
     Route: 058
     Dates: start: 20120418
  2. PEGINTRON [Suspect]
     Dosage: 100 Microgram per kilogram, qw
     Route: 058
  3. REBETOL [Suspect]
     Indication: CHRONIC HEPATITIS C
     Dosage: 600 mg, qd
     Route: 048
     Dates: start: 20120418, end: 20120710
  4. REBETOL [Suspect]
     Dosage: 400 mg, qd
     Route: 048
     Dates: start: 20120711
  5. TELAVIC [Suspect]
     Indication: CHRONIC HEPATITIS C
     Dosage: 2250 mg, qd
     Route: 048
     Dates: start: 20120418, end: 20120420
  6. LENDORMIN [Concomitant]
     Indication: INSOMNIA
     Dosage: 0.25 mg per day, prn ; Formulation: POR
     Route: 048
     Dates: start: 2007
  7. TALION (BEPOTASTINE BESYLATE) [Concomitant]
     Indication: PROPHYLAXIS
     Dosage: 20 mg, qd
     Route: 048
     Dates: start: 20120417
  8. CALONAL [Concomitant]
     Indication: PROPHYLAXIS
     Dosage: 600 mg, qd , Formulation: POR
     Route: 048
     Dates: start: 20120418

REACTIONS (1)
  - Drug eruption [Recovered/Resolved]
